FAERS Safety Report 5683325-1 (Version None)
Quarter: 2008Q1

REPORT INFORMATION
  Report Type: 
  Country: None (occurrence: None)
  Receive Date: 20080327
  Receipt Date: 20080316
  Transmission Date: 20080703
  Serious: Yes (Hospitalization)
  Sender: FDA-Public Use
  Company Number: US-PFIZER INC-2008024022

PATIENT
  Sex: Female
  Weight: 101 kg

DRUGS (13)
  1. CHANTIX [Suspect]
     Indication: SMOKING CESSATION THERAPY
     Dates: start: 20080101, end: 20080303
  2. POTASSIUM CHLORIDE [Concomitant]
  3. HYDROXYZINE [Concomitant]
     Indication: ANXIETY
  4. BUSPAR [Concomitant]
     Indication: NERVOUSNESS
  5. PREDNISONE TAB [Concomitant]
  6. GABAPENTIN [Concomitant]
  7. LEVAQUIN [Concomitant]
  8. NEURONTIN [Concomitant]
  9. ACTOS [Concomitant]
  10. MONTELUKAST SODIUM [Concomitant]
  11. FUROSEMIDE [Concomitant]
  12. LORATADINE [Concomitant]
  13. NASONEX [Concomitant]

REACTIONS (3)
  - DRUG INEFFECTIVE [None]
  - INFLUENZA [None]
  - WHITE BLOOD CELL COUNT INCREASED [None]
